FAERS Safety Report 18238206 (Version 1)
Quarter: 2020Q3

REPORT INFORMATION
  Report Type: Spontaneous
  Country: US (occurrence: US)
  Receive Date: 20200907
  Receipt Date: 20200907
  Transmission Date: 20201103
  Serious: Yes (Other)
  Sender: FDA-Public Use
  Company Number: US-SA-2020SA240936

PATIENT

DRUGS (3)
  1. SKYRIZI [Concomitant]
     Active Substance: RISANKIZUMAB-RZAA
  2. DUPIXENT [Suspect]
     Active Substance: DUPILUMAB
     Dosage: 300 MG, QOW
     Route: 058
     Dates: start: 20200128
  3. DUPIXENT [Suspect]
     Active Substance: DUPILUMAB
     Indication: DERMATITIS ATOPIC
     Dosage: UNK UNK, 1X
     Route: 058
     Dates: start: 202001, end: 202001

REACTIONS (3)
  - Dementia [Unknown]
  - Inappropriate schedule of product administration [Unknown]
  - Confusional state [Unknown]

NARRATIVE: CASE EVENT DATE: 2020
